FAERS Safety Report 19864500 (Version 1)
Quarter: 2021Q3

REPORT INFORMATION
  Report Type: Spontaneous
  Country: CN (occurrence: CN)
  Receive Date: 20210921
  Receipt Date: 20210921
  Transmission Date: 20211014
  Serious: Yes (Hospitalization)
  Sender: FDA-Public Use
  Company Number: CN-PFIZER INC-202101169935

PATIENT
  Age: 36 Year
  Sex: Male

DRUGS (2)
  1. EPIRUBICIN HCL [Suspect]
     Active Substance: EPIRUBICIN HYDROCHLORIDE
     Indication: HODGKIN^S DISEASE
     Dosage: 60 MG, 1X/DAY
     Route: 041
     Dates: start: 20210820, end: 20210820
  2. VINDESINE SULFATE [Suspect]
     Active Substance: VINDESINE SULFATE
     Indication: HODGKIN^S DISEASE
     Dosage: 4 MG, 1X/DAY
     Route: 041
     Dates: start: 20210820, end: 20210820

REACTIONS (2)
  - Blood uric acid increased [Recovering/Resolving]
  - Myalgia [Recovering/Resolving]

NARRATIVE: CASE EVENT DATE: 20210821
